FAERS Safety Report 16400676 (Version 7)
Quarter: 2020Q3

REPORT INFORMATION
  Report Type: Spontaneous
  Country: US (occurrence: US)
  Receive Date: 20190606
  Receipt Date: 20200729
  Transmission Date: 20201102
  Serious: Yes (Hospitalization)
  Sender: FDA-Public Use
  Company Number: US-ACTELION-A-NJ2019-191085

PATIENT
  Age: 56 Year
  Sex: Female

DRUGS (6)
  1. SILDENAFIL CITRATE. [Concomitant]
     Active Substance: SILDENAFIL CITRATE
  2. OPSUMIT [Suspect]
     Active Substance: MACITENTAN
     Indication: PULMONARY ARTERIAL HYPERTENSION
     Dosage: 10 MG, QD
     Route: 048
  3. REMODULIN [Suspect]
     Active Substance: TREPROSTINIL
     Indication: PRODUCT USED FOR UNKNOWN INDICATION
     Route: 058
  4. ELIQUIS [Concomitant]
     Active Substance: APIXABAN
  5. ORENITRAM [Suspect]
     Active Substance: TREPROSTINIL
     Indication: PRODUCT USED FOR UNKNOWN INDICATION
     Route: 048
  6. ADEMPAS [Suspect]
     Active Substance: RIOCIGUAT
     Indication: PRODUCT USED FOR UNKNOWN INDICATION
     Route: 065

REACTIONS (18)
  - Catheter site erythema [Unknown]
  - Nausea [Unknown]
  - Migraine [Unknown]
  - Vomiting [Unknown]
  - Catheter site haemorrhage [Unknown]
  - Headache [Unknown]
  - Hypotension [Unknown]
  - Catheter site swelling [Unknown]
  - Abdominal discomfort [Recovered/Resolved]
  - Fatigue [Unknown]
  - Unevaluable event [Not Recovered/Not Resolved]
  - Cardiac flutter [Unknown]
  - Catheter site pain [Unknown]
  - Vascular access complication [Unknown]
  - Pain in jaw [Recovered/Resolved]
  - Hot flush [Unknown]
  - Infection [Unknown]
  - Flushing [Unknown]

NARRATIVE: CASE EVENT DATE: 202007
